FAERS Safety Report 17270577 (Version 1)
Quarter: 2020Q1

REPORT INFORMATION
  Report Type: Other
  Country: FR (occurrence: FR)
  Receive Date: 20200114
  Receipt Date: 20200114
  Transmission Date: 20200409
  Serious: Yes (Hospitalization)
  Sender: FDA-Public Use
  Company Number: FR-CELLTRION INC.-2020FR017599

PATIENT

DRUGS (2)
  1. PERJETA [Suspect]
     Active Substance: PERTUZUMAB
     Indication: BREAST CANCER
     Dosage: 840 MG
     Route: 041
     Dates: start: 20190830, end: 20190830
  2. HERZUMA [Suspect]
     Active Substance: TRASTUZUMAB-PKRB
     Indication: BREAST CANCER
     Dosage: 720 MG
     Route: 041
     Dates: start: 20190830, end: 20190830

REACTIONS (7)
  - Pyrexia [Recovered/Resolved]
  - Oxygen saturation decreased [Recovered/Resolved]
  - Hypotension [Recovered/Resolved]
  - Tachycardia [Recovered/Resolved]
  - Nausea [Recovered/Resolved]
  - Rash [Recovered/Resolved]
  - Chills [Recovered/Resolved]

NARRATIVE: CASE EVENT DATE: 20190830
